FAERS Safety Report 7080477-6 (Version None)
Quarter: 2010Q4

REPORT INFORMATION
  Report Type: 
  Country: None (occurrence: None)
  Receive Date: 20101103
  Receipt Date: 20101025
  Transmission Date: 20110411
  Serious: Yes (Hospitalization)
  Sender: FDA-Public Use
  Company Number: PHHO2010DE04710

PATIENT
  Sex: Male

DRUGS (1)
  1. ALISKIREN ALI+TAB [Suspect]
     Indication: ACUTE MYOCARDIAL INFARCTION
     Dosage: CODE NOT BROKEN
     Route: 048
     Dates: start: 20080705

REACTIONS (5)
  - ADENOCARCINOMA [None]
  - CONCOMITANT DISEASE PROGRESSION [None]
  - DRUG INEFFECTIVE [None]
  - FATIGUE [None]
  - HEPATIC ENZYME INCREASED [None]
